FAERS Safety Report 4704541-9 (Version None)
Quarter: 2005Q2

REPORT INFORMATION
  Report Type: 
  Country: None (occurrence: None)
  Receive Date: 20050630
  Receipt Date: 20050121
  Transmission Date: 20051028
  Serious: Yes (Life-Threatening, Hospitalization)
  Sender: FDA-Public Use
  Company Number: FR-ABBOTT-05P-056-0287974-00

PATIENT
  Age: 35 Year
  Sex: Female

DRUGS (6)
  1. DEPAKOTE [Suspect]
     Indication: PHOBIA
     Route: 048
     Dates: start: 20041104, end: 20041213
  2. RISPERIDONE [Suspect]
     Indication: PHOBIA
     Route: 048
     Dates: start: 20041102, end: 20041213
  3. GLICLAZIDE [Suspect]
     Indication: DIABETES MELLITUS NON-INSULIN-DEPENDENT
     Route: 048
     Dates: start: 20041202, end: 20041220
  4. CLONAZEPAM [Suspect]
     Indication: BIPOLAR I DISORDER
     Route: 048
     Dates: start: 20041101, end: 20041213
  5. PAROXETINE HYDROCHLORIDE [Concomitant]
     Indication: DEPRESSION
     Route: 065
  6. ALPRAZOLAM [Concomitant]
     Indication: DEPRESSION
     Route: 065

REACTIONS (17)
  - CHAPPED LIPS [None]
  - CONJUNCTIVITIS INFECTIVE [None]
  - CREPITATIONS [None]
  - CYTOLYTIC HEPATITIS [None]
  - DERMATITIS EXFOLIATIVE [None]
  - DRUG RASH WITH EOSINOPHILIA AND SYSTEMIC SYMPTOMS [None]
  - FACE OEDEMA [None]
  - GENERAL PHYSICAL HEALTH DETERIORATION [None]
  - HYPOTENSION [None]
  - LICHENOID KERATOSIS [None]
  - LYMPHADENOPATHY [None]
  - OLIGURIA [None]
  - OXYGEN SATURATION DECREASED [None]
  - PANCYTOPENIA [None]
  - PULMONARY OEDEMA [None]
  - PYREXIA [None]
  - SKIN EXFOLIATION [None]
